FAERS Safety Report 4589515-3 (Version None)
Quarter: 2005Q1

REPORT INFORMATION
  Report Type: 
  Country: None (occurrence: None)
  Receive Date: 20050216
  Receipt Date: 20041119
  Transmission Date: 20050727
  Serious: Yes (Life-Threatening, Hospitalization)
  Sender: FDA-Public Use
  Company Number: 2004209832DE

PATIENT
  Age: 78 Year
  Sex: Male
  Weight: 80 kg

DRUGS (1)
  1. BEXTRA [Suspect]
     Indication: ILL-DEFINED DISORDER
     Dosage: (20 MG,), ORAL
     Route: 048

REACTIONS (5)
  - ALANINE AMINOTRANSFERASE INCREASED [None]
  - ASPARTATE AMINOTRANSFERASE INCREASED [None]
  - BLOOD LACTATE DEHYDROGENASE INCREASED [None]
  - DRUG HYPERSENSITIVITY [None]
  - ERYTHEMA MULTIFORME [None]
